FAERS Safety Report 7350782-4 (Version None)
Quarter: 2011Q1

REPORT INFORMATION
  Report Type: 
  Country: None (occurrence: None)
  Receive Date: 20110314
  Receipt Date: 20100927
  Transmission Date: 20110831
  Serious: Yes (Other)
  Sender: FDA-Public Use
  Company Number: US-BAYER-200944116NA

PATIENT
  Sex: Female
  Weight: 92.971 kg

DRUGS (4)
  1. XANAX [Concomitant]
  2. AMBIEN [Concomitant]
  3. LORATADINE [Concomitant]
  4. YASMIN [Suspect]
     Route: 048
     Dates: start: 20060101, end: 20070615

REACTIONS (5)
  - CHOLECYSTITIS CHRONIC [None]
  - CHOLELITHIASIS [None]
  - ABDOMINAL PAIN [None]
  - NAUSEA [None]
  - INJURY [None]
